FAERS Safety Report 18717734 (Version 1)
Quarter: 2021Q1

REPORT INFORMATION
  Report Type: Spontaneous
  Country: FR (occurrence: FR)
  Receive Date: 20210108
  Receipt Date: 20210108
  Transmission Date: 20210419
  Serious: Yes (Hospitalization)
  Sender: FDA-Public Use
  Company Number: FR-TEVA-2021-FR-1866292

PATIENT
  Age: 20 Year
  Sex: Female

DRUGS (3)
  1. DAFALGAN CODEINE [Suspect]
     Active Substance: ACETAMINOPHEN\CODEINE PHOSPHATE
     Route: 065
  2. TERCIAN [Suspect]
     Active Substance: CYAMEMAZINE
     Route: 065
  3. TRAMADOL (CHLORHYDRATE DE) [Suspect]
     Active Substance: TRAMADOL HYDROCHLORIDE
     Route: 065

REACTIONS (3)
  - Somnolence [Recovered/Resolved]
  - Miosis [Recovered/Resolved]
  - Respiratory depression [Recovered/Resolved]
